FAERS Safety Report 5460222-8 (Version None)
Quarter: 2007Q3

REPORT INFORMATION
  Report Type: 
  Country: None (occurrence: None)
  Receive Date: 20070919
  Receipt Date: 20070605
  Transmission Date: 20080115
  Serious: Yes (Hospitalization)
  Sender: FDA-Public Use
  Company Number: US-ASTRAZENECA-2007UW13643

PATIENT
  Age: 55 Year
  Sex: Male
  Weight: 86.2 kg

DRUGS (4)
  1. SEROQUEL [Suspect]
     Indication: BIPOLAR DISORDER
     Route: 048
     Dates: start: 20061201
  2. WELLBUTRIN [Concomitant]
  3. MILK OF MAGNESIA [Concomitant]
  4. TOPROL-XL [Concomitant]

REACTIONS (10)
  - ANOREXIA [None]
  - ASTHENIA [None]
  - BALANCE DISORDER [None]
  - CONSTIPATION [None]
  - DRY MOUTH [None]
  - ORTHOSTATIC HYPOTENSION [None]
  - SEDATION [None]
  - SLUGGISHNESS [None]
  - SUICIDE ATTEMPT [None]
  - WEIGHT DECREASED [None]
